FAERS Safety Report 12689483 (Version 1)
Quarter: 2016Q3

REPORT INFORMATION
  Report Type: Spontaneous
  Country: US (occurrence: None)
  Receive Date: 20160825
  Receipt Date: 20160825
  Transmission Date: 20161109
  Serious: Yes (Other)
  Sender: FDA-Public Use
  Company Number: None

PATIENT

DRUGS (2)
  1. EPINEPHRINE, 1 MG/ML PAR PHARMACEUTICALS [Suspect]
     Active Substance: EPINEPHRINE
     Route: 030
     Dates: start: 20160801, end: 20160822
  2. EPINEPHRINE, 1 MG/ML PAR PHARMACEUTICALS [Suspect]
     Active Substance: EPINEPHRINE
     Route: 045
     Dates: start: 20160801, end: 20160822

REACTIONS (2)
  - Product packaging issue [None]
  - Intercepted drug dispensing error [None]

NARRATIVE: CASE EVENT DATE: 20160822
